FAERS Safety Report 8242675-5 (Version None)
Quarter: 2012Q1

REPORT INFORMATION
  Report Type: 
  Country: None (occurrence: None)
  Receive Date: 20120329
  Receipt Date: 20120320
  Transmission Date: 20120608
  Serious: Yes (Other)
  Sender: FDA-Public Use
  Company Number: BR-ELI_LILLY_AND_COMPANY-BR201112001604

PATIENT
  Sex: Female
  Weight: 38 kg

DRUGS (3)
  1. FLUTICASONE PROPIONATE/SALMETEROL [Concomitant]
     Indication: ASTHMA
     Dosage: UNK, UNKNOWN
     Route: 065
  2. FORTEO [Suspect]
     Indication: OSTEOPOROSIS
     Dosage: UNK, UNKNOWN
     Route: 065
     Dates: start: 20110601
  3. BECLOMETHASONE DIPROPIONATE [Concomitant]
     Indication: ASTHMATIC CRISIS
     Dosage: UNK, EVERY 3 HRS
     Route: 065

REACTIONS (8)
  - COUGH [None]
  - HEADACHE [None]
  - PNEUMONIA [None]
  - TUBERCULOSIS [None]
  - DYSPNOEA [None]
  - VOMITING [None]
  - NAUSEA [None]
  - RESPIRATORY TRACT INFECTION [None]
